FAERS Safety Report 6038724-5 (Version None)
Quarter: 2009Q1

REPORT INFORMATION
  Report Type: 
  Country: None (occurrence: None)
  Receive Date: 20090115
  Receipt Date: 20081210
  Transmission Date: 20090719
  Serious: No
  Sender: FDA-Public Use
  Company Number: US-BAYER-200814845BCC

PATIENT
  Age: 68 Year
  Sex: Male
  Weight: 100 kg

DRUGS (4)
  1. ALEVE [Suspect]
     Indication: ARTHRITIS
     Dates: start: 20020101, end: 20080601
  2. ALEVE [Suspect]
     Dosage: AS USED: 220 MG  UNIT DOSE: 220 MG
     Dates: start: 20080601
  3. TYLENOL (CAPLET) [Concomitant]
  4. IBUPROFEN [Concomitant]

REACTIONS (4)
  - ABDOMINAL DISCOMFORT [None]
  - ABDOMINAL DISTENSION [None]
  - CONSTIPATION [None]
  - PAIN [None]
